FAERS Safety Report 7953573-6 (Version None)
Quarter: 2011Q4

REPORT INFORMATION
  Report Type: 
  Country: None (occurrence: None)
  Receive Date: 20111202
  Receipt Date: 20111122
  Transmission Date: 20120403
  Serious: Yes (Hospitalization)
  Sender: FDA-Public Use
  Company Number: US-ELI_LILLY_AND_COMPANY-US201111007133

PATIENT
  Sex: Male
  Weight: 82.72 kg

DRUGS (5)
  1. COMBIVENT [Concomitant]
  2. CHANTIX [Concomitant]
  3. TRIMIX [Concomitant]
  4. GEMCITABINE HYDROCHLORIDE [Suspect]
     Indication: BLADDER CANCER
     Dosage: 2 G, UNK
     Dates: start: 20111025
  5. PREDNISONE [Concomitant]

REACTIONS (1)
  - BLOOD DISORDER [None]
